FAERS Safety Report 25599550 (Version 2)
Quarter: 2025Q3

REPORT INFORMATION
  Report Type: Report from Study
  Country: US (occurrence: US)
  Receive Date: 20250724
  Receipt Date: 20250915
  Transmission Date: 20251021
  Serious: No
  Sender: MERCK SHARP & DOHME LLC
  Company Number: US-009507513-2307370

PATIENT
  Age: 73 Year
  Sex: Female
  Weight: 66.5 kg

DRUGS (28)
  1. WINREVAIR [Suspect]
     Active Substance: SOTATERCEPT-CSRK
     Indication: Pulmonary arterial hypertension
     Route: 058
     Dates: end: 20250702
  2. WINREVAIR [Suspect]
     Active Substance: SOTATERCEPT-CSRK
  3. WINREVAIR [Suspect]
     Active Substance: SOTATERCEPT-CSRK
  4. WINREVAIR [Suspect]
     Active Substance: SOTATERCEPT-CSRK
  5. WINREVAIR [Suspect]
     Active Substance: SOTATERCEPT-CSRK
     Indication: Pulmonary arterial hypertension
     Route: 058
     Dates: start: 20250430
  6. WINREVAIR [Suspect]
     Active Substance: SOTATERCEPT-CSRK
  7. WINREVAIR [Suspect]
     Active Substance: SOTATERCEPT-CSRK
  8. WINREVAIR [Suspect]
     Active Substance: SOTATERCEPT-CSRK
  9. OXYGEN [Concomitant]
     Active Substance: OXYGEN
  10. MYCOPHENOLIC ACID [Concomitant]
     Active Substance: MYCOPHENOLIC ACID
  11. OMEGA 3 [Concomitant]
     Active Substance: CAPSAICIN
  12. MACITENTAN\TADALAFIL [Concomitant]
     Active Substance: MACITENTAN\TADALAFIL
  13. KCL [Concomitant]
     Active Substance: POTASSIUM CHLORIDE
  14. Magoxide [Concomitant]
  15. ELIQUIS [Concomitant]
     Active Substance: APIXABAN
  16. LEVOTHYROXINE [Concomitant]
     Active Substance: LEVOTHYROXINE
  17. MONTELUKAST [Concomitant]
     Active Substance: MONTELUKAST
  18. OMEPRAZOLE [Concomitant]
     Active Substance: OMEPRAZOLE
  19. LUTEIN [Concomitant]
     Active Substance: LUTEIN
  20. ALBUTEROL [Concomitant]
     Active Substance: ALBUTEROL
  21. DIETARY SUPPLEMENT\UBIDECARENONE [Concomitant]
     Active Substance: DIETARY SUPPLEMENT\UBIDECARENONE
  22. BACTRIM [Concomitant]
     Active Substance: SULFAMETHOXAZOLE\TRIMETHOPRIM
  23. UPTRAVI [Concomitant]
     Active Substance: SELEXIPAG
  24. VITAMINS [Concomitant]
     Active Substance: VITAMINS
  25. BUMEX [Concomitant]
     Active Substance: BUMETANIDE
  26. VITAMIN D3 [Concomitant]
     Active Substance: CHOLECALCIFEROL
  27. IPRATROPIUM [Concomitant]
     Active Substance: IPRATROPIUM
  28. azelastine nasal [Concomitant]

REACTIONS (1)
  - Epistaxis [Unknown]

NARRATIVE: CASE EVENT DATE: 20250630
